FAERS Safety Report 16724140 (Version 1)
Quarter: 2019Q3

REPORT INFORMATION
  Report Type: Spontaneous
  Country: US (occurrence: US)
  Receive Date: 20190703
  Receipt Date: 20190703
  Transmission Date: 20191005
  Serious: No
  Sender: FDA-Public Use
  Company Number: None

PATIENT
  Age: 44 Year
  Sex: Female
  Weight: 122.47 kg

DRUGS (2)
  1. OTEZLA [Suspect]
     Active Substance: APREMILAST
     Indication: RHEUMATOID ARTHRITIS
     Route: 048
     Dates: start: 201901
  2. OTEZLA [Suspect]
     Active Substance: APREMILAST
     Indication: PUSTULAR PSORIASIS

REACTIONS (1)
  - Surgery [None]
